FAERS Safety Report 24049143 (Version 5)
Quarter: 2024Q3

REPORT INFORMATION
  Report Type: Report from Study
  Country: DE (occurrence: DE)
  Receive Date: 20240704
  Receipt Date: 20240917
  Transmission Date: 20241017
  Serious: Yes (Other)
  Sender: BAUSCH AND LOMB
  Company Number: DE-SA-SAC20240603000575

PATIENT
  Age: 72 Year
  Sex: Female
  Weight: 68 kg

DRUGS (29)
  1. DEXAMETHASONE [Suspect]
     Active Substance: DEXAMETHASONE
     Indication: Plasma cell myeloma refractory
     Dosage: 20 MG, QW
     Route: 065
     Dates: start: 20240322, end: 20240413
  2. ISATUXIMAB [Suspect]
     Active Substance: ISATUXIMAB
     Indication: Plasma cell myeloma refractory
     Dosage: 700 MG, QW
     Route: 065
     Dates: start: 20240322, end: 20240412
  3. ISATUXIMAB [Suspect]
     Active Substance: ISATUXIMAB
     Dosage: 688 MG, BIW
     Route: 065
     Dates: start: 20240516, end: 20240530
  4. CARFILZOMIB [Suspect]
     Active Substance: CARFILZOMIB
     Indication: Plasma cell myeloma refractory
     Dosage: 34 MG ZYKLUS 1 D1/2, D8/9, D15/16
     Route: 065
     Dates: start: 20240322, end: 20240323
  5. CARFILZOMIB [Suspect]
     Active Substance: CARFILZOMIB
     Dosage: 95 MG, QW
     Route: 065
     Dates: start: 20240516, end: 20240531
  6. CALCIUM CARBONATE\CHOLECALCIFEROL [Concomitant]
     Active Substance: CALCIUM CARBONATE\CHOLECALCIFEROL
     Indication: Osteoporosis
     Dosage: UNK
     Route: 065
     Dates: start: 202305
  7. VALERIAN [Concomitant]
     Active Substance: VALERIAN
     Indication: Insomnia
     Dosage: UNK
     Route: 065
     Dates: start: 20240325, end: 20240325
  8. COTRIMOXAZOLE [Concomitant]
     Active Substance: SULFAMETHOXAZOLE\TRIMETHOPRIM
     Indication: Infection prophylaxis
     Dosage: UNK
     Route: 065
     Dates: start: 20240325
  9. CODEINE PHOSPHATE [Concomitant]
     Active Substance: CODEINE PHOSPHATE
     Indication: Cough
     Dosage: UNK
     Route: 065
     Dates: start: 20240324, end: 20240324
  10. AMLODIPINE [Concomitant]
     Active Substance: AMLODIPINE BESYLATE
     Indication: Hypertension
     Dosage: UNK
     Route: 065
     Dates: start: 202305
  11. AMITRIPTYLINE HYDROCHLORIDE [Concomitant]
     Active Substance: AMITRIPTYLINE HYDROCHLORIDE
     Indication: Depression
     Dosage: UNK
     Route: 065
     Dates: start: 2023
  12. BENSERAZIDE\LEVODOPA [Concomitant]
     Active Substance: BENSERAZIDE\LEVODOPA
     Indication: Restless legs syndrome
     Dosage: UNK
     Route: 065
     Dates: start: 2023
  13. METAMIZOLE [Concomitant]
     Active Substance: METAMIZOLE
     Indication: Neck pain
     Dosage: UNK
     Route: 065
     Dates: start: 20240407, end: 20240407
  14. METAMIZOLE [Concomitant]
     Active Substance: METAMIZOLE
     Indication: Headache
     Dosage: UNK
     Route: 065
     Dates: start: 20240325
  15. CANDESARTAN CILEXETIL [Concomitant]
     Active Substance: CANDESARTAN CILEXETIL
     Indication: Hypertension
     Dosage: UNK
     Route: 065
     Dates: start: 202305
  16. PRAMIPEXOLE [Concomitant]
     Active Substance: PRAMIPEXOLE\PRAMIPEXOLE DIHYDROCHLORIDE
     Indication: Restless legs syndrome
     Dosage: UNK
     Route: 065
     Dates: start: 2023
  17. GRANISETRON [Concomitant]
     Active Substance: GRANISETRON
     Indication: Chronic gastritis
     Dosage: UNK
     Route: 065
     Dates: start: 202310
  18. GRANISETRON [Concomitant]
     Active Substance: GRANISETRON
     Dosage: UNK
     Route: 065
     Dates: start: 20240406, end: 20240406
  19. ESOMEPRAZOLE [Concomitant]
     Active Substance: ESOMEPRAZOLE
     Indication: Chronic gastritis
     Dosage: UNK
     Route: 065
     Dates: start: 2023
  20. MELATONIN [Concomitant]
     Active Substance: MELATONIN
     Indication: Sleep disorder
     Dosage: UNK
     Route: 065
     Dates: start: 20240416
  21. ACETAMINOPHEN [Concomitant]
     Active Substance: ACETAMINOPHEN
     Indication: Premedication
     Dosage: UNK
     Route: 065
     Dates: start: 20240312, end: 20240412
  22. OLANZAPINE [Concomitant]
     Active Substance: OLANZAPINE
     Indication: Chronic gastritis
     Dosage: UNK
     Route: 065
     Dates: start: 2023
  23. TINZAPARIN [Concomitant]
     Active Substance: TINZAPARIN
     Indication: Thrombosis prophylaxis
     Dosage: UNK
     Route: 065
     Dates: start: 20240322
  24. ACYCLOVIR [Concomitant]
     Active Substance: ACYCLOVIR
     Indication: Product used for unknown indication
     Dosage: UNK
     Route: 065
     Dates: start: 2023
  25. CLEMASTINE [Concomitant]
     Active Substance: CLEMASTINE
     Indication: Premedication
     Dosage: UNK
     Route: 065
     Dates: start: 20240312, end: 20240412
  26. CLEMASTINE [Concomitant]
     Active Substance: CLEMASTINE
     Dosage: UNK
     Route: 065
     Dates: start: 20240516, end: 20240516
  27. BISOPROLOL FUMARATE [Concomitant]
     Active Substance: BISOPROLOL FUMARATE
     Indication: Hypertension
     Dosage: UNK
     Route: 065
     Dates: start: 202305
  28. ETHOXAZORUTOSIDE\SODIUM ACETATE\SODIUM CHLORIDE\SORBITOL [Concomitant]
     Active Substance: ETHOXAZORUTOSIDE\SODIUM ACETATE\SODIUM CHLORIDE\SORBITOL
     Indication: Premedication
     Dosage: EVERY CYCLE
     Route: 065
     Dates: start: 20240322, end: 20240414
  29. DEXAMETHASONE [Concomitant]
     Active Substance: DEXAMETHASONE
     Indication: Premedication
     Dosage: UNK
     Route: 065
     Dates: start: 20240322, end: 20240424

REACTIONS (7)
  - Hypertensive crisis [Recovered/Resolved]
  - Hypertensive crisis [Recovered/Resolved]
  - Arthralgia [Unknown]
  - Cough [Recovered/Resolved]
  - Restless legs syndrome [Not Recovered/Not Resolved]
  - Weight decreased [Recovered/Resolved]
  - Urticaria [Recovered/Resolved]

NARRATIVE: CASE EVENT DATE: 20240322
